FAERS Safety Report 6485359-6 (Version None)
Quarter: 2009Q4

REPORT INFORMATION
  Report Type: 
  Country: None (occurrence: None)
  Receive Date: 20091203
  Receipt Date: 20091125
  Transmission Date: 20100525
  Serious: Yes (Life-Threatening, Other)
  Sender: FDA-Public Use
  Company Number: LTI2009A00291

PATIENT
  Age: 57 Year
  Sex: Female

DRUGS (9)
  1. ACTOS [Suspect]
     Indication: INSULIN RESISTANT DIABETES
     Dosage: 45 MG (45 MG, 1 IN 1 D), ORAL
     Route: 048
     Dates: start: 20071211, end: 20090910
  2. ACTOS [Suspect]
     Indication: TYPE 2 DIABETES MELLITUS
     Dosage: 45 MG (45 MG, 1 IN 1 D), ORAL
     Route: 048
     Dates: start: 20071211, end: 20090910
  3. LEVEMIR [Concomitant]
  4. IRBESARTAN [Concomitant]
  5. CRESTOR [Concomitant]
  6. LYRICA [Concomitant]
  7. TRACLEER [Concomitant]
  8. REVATIO [Concomitant]
  9. TARDYFERON (FERROUS SULFATE) [Concomitant]

REACTIONS (11)
  - ANAEMIA [None]
  - CENTRAL-ALVEOLAR HYPOVENTILATION [None]
  - CHRONIC RESPIRATORY FAILURE [None]
  - DISEASE PROGRESSION [None]
  - HYPERCHOLESTEROLAEMIA [None]
  - HYPERTENSION [None]
  - OBESITY [None]
  - PULMONARY ARTERIAL HYPERTENSION [None]
  - RENAL FAILURE CHRONIC [None]
  - TYPE 2 DIABETES MELLITUS [None]
  - WEIGHT INCREASED [None]
